FAERS Safety Report 6839304-1 (Version None)
Quarter: 2010Q3

REPORT INFORMATION
  Report Type: 
  Country: None (occurrence: None)
  Receive Date: 20100714
  Receipt Date: 20100630
  Transmission Date: 20110219
  Serious: Yes (Other)
  Sender: FDA-Public Use
  Company Number: PHHY2010US43446

PATIENT
  Sex: Female

DRUGS (9)
  1. FEMARA [Suspect]
     Dosage: 2.5 MG
     Dates: start: 20091001, end: 20091123
  2. FEMARA [Suspect]
     Dosage: UNK
     Dates: start: 20100415
  3. ARIMIDEX [Suspect]
     Dosage: UNK
     Dates: end: 20100101
  4. VITAMIN D [Suspect]
     Dosage: 2000 UNITS
  5. COZAAR [Concomitant]
     Dosage: 50 MG
  6. PANTOPRAZOLE [Concomitant]
     Dosage: 20 MG
  7. NIASPAN [Concomitant]
     Dosage: 1500 MG
  8. ASPIRIN [Concomitant]
     Dosage: 81 MG
  9. CALCIUM [Concomitant]
     Dosage: 500 MG

REACTIONS (14)
  - ARTHRALGIA [None]
  - ARTHRITIS [None]
  - ASTHENIA [None]
  - DIZZINESS [None]
  - DRUG INTOLERANCE [None]
  - FATIGUE [None]
  - HEART RATE INCREASED [None]
  - INFLUENZA [None]
  - PAIN [None]
  - THINKING ABNORMAL [None]
  - UTERINE DILATION AND CURETTAGE [None]
  - UTERINE POLYP [None]
  - VAGINAL HAEMORRHAGE [None]
  - WRONG TECHNIQUE IN DRUG USAGE PROCESS [None]
